FAERS Safety Report 11789456 (Version 1)
Quarter: 2015Q4

REPORT INFORMATION
  Report Type: Spontaneous
  Country: US (occurrence: None)
  Receive Date: 20151130
  Receipt Date: 20151130
  Transmission Date: 20160305
  Serious: Yes (Life-Threatening, Hospitalization, Other)
  Sender: FDA-Public Use
  Company Number: None

PATIENT
  Age: 65 Year
  Sex: Male
  Weight: 87.7 kg

DRUGS (4)
  1. SIMVASTATIN. [Suspect]
     Active Substance: SIMVASTATIN
     Indication: HYPERLIPIDAEMIA
     Route: 048
     Dates: start: 20120410, end: 20130617
  2. SIMVASTATIN. [Suspect]
     Active Substance: SIMVASTATIN
     Indication: HYPERCHOLESTEROLAEMIA
     Route: 048
     Dates: start: 20120410, end: 20130617
  3. GEMFIBROZIL. [Suspect]
     Active Substance: GEMFIBROZIL
     Indication: HYPERLIPIDAEMIA
     Route: 048
     Dates: start: 20130525, end: 20130617
  4. GEMFIBROZIL. [Suspect]
     Active Substance: GEMFIBROZIL
     Indication: HYPERCHOLESTEROLAEMIA
     Route: 048
     Dates: start: 20130525, end: 20130617

REACTIONS (5)
  - Rhabdomyolysis [None]
  - Acute kidney injury [None]
  - Hepatitis [None]
  - Dialysis [None]
  - Renal tubular necrosis [None]

NARRATIVE: CASE EVENT DATE: 20130617
